FAERS Safety Report 10023779 (Version 1)
Quarter: 2014Q1

REPORT INFORMATION
  Report Type: Spontaneous
  Country: US (occurrence: None)
  Receive Date: 20140319
  Receipt Date: 20140319
  Transmission Date: 20141002
  Serious: Yes (Disabling)
  Sender: FDA-Public Use
  Company Number: None

PATIENT
  Age: 60 Year
  Sex: Female
  Weight: 83.92 kg

DRUGS (45)
  1. INVOKANA [Suspect]
     Indication: DIABETES MELLITUS
     Dosage: 1 PILL
     Route: 048
     Dates: start: 20130923, end: 20140301
  2. LEVEMIR [Concomitant]
  3. GLYPIZIDE [Concomitant]
  4. METFORMIN [Concomitant]
  5. ENALAPRIL [Concomitant]
  6. ALLEGRA ALLERGY [Concomitant]
  7. ASPIRIN [Concomitant]
  8. JIGSAW [Concomitant]
  9. MAGNESIUM [Concomitant]
  10. THORNE MAGNESIUM CITRATE [Concomitant]
  11. BLUE HERON FIBER [Concomitant]
  12. POLYPHENAL NUTRIENTS [Concomitant]
  13. JARROW PROBIOTIC [Concomitant]
  14. R-LIPOIC ACID [Concomitant]
  15. COQ10 [Concomitant]
  16. BENFOTIAMINE [Concomitant]
  17. TIHUR TEA [Concomitant]
  18. BLADDER EASE [Concomitant]
  19. N-ACETYL L-CYSTEINE [Concomitant]
  20. INOSITOL HEXAPHOSPHATE [Concomitant]
  21. GLABRINEX (LICORICE) [Concomitant]
  22. CHELATED CHROMIUM [Concomitant]
  23. FLAVINOX [Concomitant]
  24. MILK THISTLE [Concomitant]
  25. VRP CORTISOL CONTROL [Concomitant]
  26. OMEGA 3 FISH OIL (FISH OIL) [Concomitant]
  27. DB-7 BEST LITHIUM [Concomitant]
  28. ZINC [Concomitant]
  29. COD LIVER OIL [Concomitant]
  30. INTESTINE TARGETTED ENZYME DIGESTIVE AID [Concomitant]
  31. TRE-EN-EM GRAIN CONCENTRATES [Concomitant]
  32. TAURINE [Concomitant]
  33. MEGA PC-35 [Concomitant]
  34. ASTAFX [Concomitant]
  35. POTASSIUM CHLORIDE [Concomitant]
  36. ZYFLAMEND [Concomitant]
  37. LONGVIDA OPTIMIZED CURCUMIN [Concomitant]
  38. NATTOKINASE [Concomitant]
  39. WOBENZYM [Concomitant]
  40. DHEA [Concomitant]
  41. PREGNOLONE [Concomitant]
  42. V-PAP [Concomitant]
  43. OXYGEN [Concomitant]
  44. D3 [Concomitant]
  45. DHA [Concomitant]

REACTIONS (10)
  - Blood pressure increased [None]
  - Blood cholesterol increased [None]
  - Weight increased [None]
  - Localised infection [None]
  - Bronchitis [None]
  - Cystitis [None]
  - Cardiac murmur [None]
  - Neuralgia [None]
  - Blood triglycerides decreased [None]
  - Blood glucose abnormal [None]
